FAERS Safety Report 15112453 (Version 1)
Quarter: 2018Q3

REPORT INFORMATION
  Report Type: Spontaneous
  Country: US (occurrence: US)
  Receive Date: 20180705
  Receipt Date: 20180705
  Transmission Date: 20181010
  Serious: No
  Sender: FDA-Public Use
  Company Number: US-009507513-1807USA001612

PATIENT
  Sex: Female

DRUGS (2)
  1. BRIDION [Suspect]
     Active Substance: SUGAMMADEX
     Indication: NEUROMUSCULAR BLOCKADE REVERSAL
     Dosage: 4MG/KG ON ACTUAL BODY WEIGHT
     Dates: start: 201804
  2. BRIDION [Suspect]
     Active Substance: SUGAMMADEX
     Dosage: INCREASED IN 2MG/KG
     Dates: start: 2018

REACTIONS (3)
  - Drug ineffective [Recovered/Resolved]
  - Asthenia [Not Recovered/Not Resolved]
  - Muscle twitching [Recovered/Resolved]
